FAERS Safety Report 14169164 (Version 1)
Quarter: 2017Q4

REPORT INFORMATION
  Report Type: Spontaneous
  Country: SE (occurrence: SE)
  Receive Date: 20171108
  Receipt Date: 20171108
  Transmission Date: 20180321
  Serious: Yes (Death, Other)
  Sender: FDA-Public Use
  Company Number: SE-LUPIN PHARMACEUTICALS INC.-2017-06435

PATIENT
  Age: 50 Year
  Sex: Male

DRUGS (7)
  1. PROPOFOL. [Suspect]
     Active Substance: PROPOFOL
     Indication: INSOMNIA
     Dosage: 25 MG, 10:40 AM
     Route: 065
  2. LIDOCAINE. [Suspect]
     Active Substance: LIDOCAINE
     Indication: INSOMNIA
     Dosage: UNK
     Route: 065
  3. LORAZEPAM. [Suspect]
     Active Substance: LORAZEPAM
     Indication: INSOMNIA
     Dosage: 2 MG, AT 2 AM
     Route: 042
     Dates: start: 20060625
  4. MIDAZOLAM [Suspect]
     Active Substance: MIDAZOLAM HYDROCHLORIDE
     Indication: INSOMNIA
     Dosage: 2 MG, 3 AM
     Route: 042
     Dates: start: 20060625
  5. LORAZEPAM. [Suspect]
     Active Substance: LORAZEPAM
     Dosage: 2 MG, AT 5 AM
     Route: 042
     Dates: start: 20060625
  6. DIAZEPAM. [Suspect]
     Active Substance: DIAZEPAM
     Indication: INSOMNIA
     Dosage: 10 MG, AT 1:30 AM
     Route: 065
  7. MIDAZOLAM [Suspect]
     Active Substance: MIDAZOLAM HYDROCHLORIDE
     Dosage: 2 MG, 7:30 AM
     Route: 042
     Dates: start: 20060625

REACTIONS (3)
  - Postmortem blood drug level abnormal [Unknown]
  - Toxicity to various agents [Fatal]
  - Overdose [Fatal]
